FAERS Safety Report 19519876 (Version 2)
Quarter: 2021Q3

REPORT INFORMATION
  Report Type: Spontaneous
  Country: NL (occurrence: NL)
  Receive Date: 20210712
  Receipt Date: 20210730
  Transmission Date: 20211014
  Serious: Yes (Other)
  Sender: FDA-Public Use
  Company Number: NL-MYLANLABS-2021M1041178

PATIENT
  Sex: Female

DRUGS (3)
  1. LEVOTHYROXINE. [Interacting]
     Active Substance: LEVOTHYROXINE
     Indication: THYROID DISORDER
     Dosage: TABLET, 100 ?G (MICROGRAM)
  2. PANTOPRAZOLE [Suspect]
     Active Substance: PANTOPRAZOLE
     Indication: HELICOBACTER INFECTION
     Dosage: 40 MILLIGRAM, QD (2D1T 1W DAARNA 1D1T)
     Dates: start: 20210302, end: 20210408
  3. LEVOTHYROXINE. [Interacting]
     Active Substance: LEVOTHYROXINE
     Indication: THYROID DISORDER
     Dosage: TABLET, 25 ?G (MICROGRAM)

REACTIONS (2)
  - Drug interaction [Unknown]
  - Hypothyroidism [Recovering/Resolving]
